FAERS Safety Report 8183824-7 (Version None)
Quarter: 2012Q1

REPORT INFORMATION
  Report Type: 
  Country: None (occurrence: None)
  Receive Date: 20120305
  Receipt Date: 20120227
  Transmission Date: 20120608
  Serious: Yes (Hospitalization)
  Sender: FDA-Public Use
  Company Number: US-PFIZER INC-2011083106

PATIENT
  Sex: Female
  Weight: 154 kg

DRUGS (8)
  1. INSULIN [Concomitant]
     Dosage: UNK
  2. TRICOR [Concomitant]
     Indication: BLOOD TRIGLYCERIDES INCREASED
     Dosage: UNK
  3. CHANTIX [Concomitant]
     Dosage: UNK
  4. NEXIUM [Concomitant]
     Dosage: UNK
  5. NEURONTIN [Concomitant]
     Indication: BACK PAIN
     Dosage: UNK
  6. EFFEXOR XR [Suspect]
     Indication: DEPRESSION
     Dosage: 150 MG, 1X/DAY
     Route: 048
     Dates: start: 20080101, end: 20100401
  7. COUMADIN [Concomitant]
     Indication: ATRIAL FIBRILLATION
     Dosage: UNK
  8. LOPRESSOR [Concomitant]
     Dosage: UNK

REACTIONS (5)
  - WITHDRAWAL SYNDROME [None]
  - ACTIVITIES OF DAILY LIVING IMPAIRED [None]
  - DIZZINESS [None]
  - FEELING ABNORMAL [None]
  - HEADACHE [None]
